FAERS Safety Report 7554848-5 (Version None)
Quarter: 2011Q2

REPORT INFORMATION
  Report Type: 
  Country: None (occurrence: None)
  Receive Date: 20110617
  Receipt Date: 20110610
  Transmission Date: 20111010
  Serious: Yes (Disabling)
  Sender: FDA-Public Use
  Company Number: JP-MERCK-1106USA01880

PATIENT
  Age: 68 Year
  Sex: Male

DRUGS (11)
  1. CARVEDILOL [Concomitant]
     Route: 048
  2. DIOVAN [Concomitant]
     Route: 048
  3. ACTOS [Concomitant]
     Route: 048
  4. ATELEC [Concomitant]
     Route: 048
  5. RABEPRAZOLE SODIUM [Concomitant]
     Route: 048
  6. CRESTOR [Concomitant]
     Route: 048
  7. ISOSORBIDE DINITRATE [Concomitant]
     Route: 048
  8. ASPIRIN [Concomitant]
     Route: 048
  9. PLAVIX [Concomitant]
     Route: 048
  10. AMARYL [Concomitant]
     Route: 048
  11. JANUVIA [Suspect]
     Route: 048

REACTIONS (1)
  - BLOOD CREATININE INCREASED [None]
